FAERS Safety Report 7042827-6 (Version None)
Quarter: 2010Q4

REPORT INFORMATION
  Report Type: 
  Country: None (occurrence: None)
  Receive Date: 20101013
  Receipt Date: 20100125
  Transmission Date: 20110411
  Serious: No
  Sender: FDA-Public Use
  Company Number: US-ASTRAZENECA-2010SE03613

PATIENT
  Sex: Male
  Weight: 65.8 kg

DRUGS (4)
  1. SYMBICORT [Suspect]
     Dosage: TOTAL DAILY DOSE: 640 MCG (2 PUFFS BID)
     Route: 055
  2. SYMBICORT [Suspect]
     Dosage: TOTAL DAILY DOSE: 320 MCG (2 PUFFS ONCE DAILY)
     Route: 055
  3. PAXIL [Concomitant]
  4. REMURON [Concomitant]

REACTIONS (1)
  - ORAL DISCOMFORT [None]
